FAERS Safety Report 19698328 (Version 1)
Quarter: 2021Q3

REPORT INFORMATION
  Report Type: Spontaneous
  Country: US (occurrence: US)
  Receive Date: 20210813
  Receipt Date: 20210813
  Transmission Date: 20211014
  Serious: No
  Sender: FDA-Public Use
  Company Number: US-ADC THERAPEUTICS-ADC-2021-000094

PATIENT
  Age: 61 Year
  Sex: Male
  Weight: 96.6 kg

DRUGS (22)
  1. HYDROCODONE [Concomitant]
     Active Substance: HYDROCODONE
     Dosage: UNK
     Route: 048
  2. SENNOSIDE [SENNOSIDE A+B] [Concomitant]
     Active Substance: SENNOSIDES A AND B
     Dosage: UNK
     Route: 048
  3. HYDROMORPHONE [Concomitant]
     Active Substance: HYDROMORPHONE
     Dosage: AS DIRECTED
     Route: 048
  4. DEXAMETHASONE. [Concomitant]
     Active Substance: DEXAMETHASONE
     Dosage: AS DIRECTED
     Route: 048
  5. ONDANSETRON [Concomitant]
     Active Substance: ONDANSETRON
     Dosage: AS NEEDED
     Route: 048
  6. LOPERAMIDE [Concomitant]
     Active Substance: LOPERAMIDE
     Dosage: AS NEEDED
     Route: 048
  7. ACYCLOVIR [ACICLOVIR] [Concomitant]
     Active Substance: ACYCLOVIR
     Dosage: AS DIRECTED
     Route: 048
  8. PROAIR HFA [Concomitant]
     Active Substance: ALBUTEROL SULFATE
     Dosage: AS NEEDED
     Route: 055
  9. ASPIRIN [ACETYLSALICYLIC ACID] [Concomitant]
     Active Substance: ASPIRIN
     Dosage: UNK
     Route: 048
  10. CIPROFLOXACIN. [Concomitant]
     Active Substance: CIPROFLOXACIN
     Dosage: UNK
     Route: 048
  11. TAMSULOSIN [Concomitant]
     Active Substance: TAMSULOSIN
     Dosage: AS DIRECTED
     Route: 048
  12. BACLOFEN. [Concomitant]
     Active Substance: BACLOFEN
     Dosage: AS DIRECTED
     Route: 048
  13. FINASTERIDE. [Concomitant]
     Active Substance: FINASTERIDE
     Dosage: UNK
     Route: 048
  14. CHLORPROMAZINE. [Concomitant]
     Active Substance: CHLORPROMAZINE
     Dosage: AS DIRECTED
     Route: 048
  15. AZELASTINE. [Concomitant]
     Active Substance: AZELASTINE HYDROCHLORIDE
     Dosage: AS DIRECTED
     Route: 045
  16. ZYNLONTA [Suspect]
     Active Substance: LONCASTUXIMAB TESIRINE-LPYL
     Indication: LYMPHOMA
     Dosage: 0.15 MILLIGRAM/KILOGRAM
     Route: 042
     Dates: start: 20210528
  17. FLUTICASONE. [Concomitant]
     Active Substance: FLUTICASONE
     Dosage: AS DIRECTED
     Route: 045
  18. FENTANYL TRANSDERMAL SYSTEM [Concomitant]
     Active Substance: FENTANYL
     Dosage: AS DIRECTED
     Route: 061
  19. NARCAN [Concomitant]
     Active Substance: NALOXONE HYDROCHLORIDE
     Dosage: AS DIRECTED
     Route: 045
  20. GENERLAC [Concomitant]
     Active Substance: LACTULOSE
     Dosage: AS DIRECTED
     Route: 048
  21. GABAPENTIINI ENNAPHARMA [Concomitant]
     Dosage: UNK
     Route: 048
  22. FLUCONAZOLE. [Concomitant]
     Active Substance: FLUCONAZOLE
     Dosage: UNK
     Route: 048

REACTIONS (3)
  - Rash [Unknown]
  - Platelet count decreased [Unknown]
  - White blood cell count decreased [Unknown]

NARRATIVE: CASE EVENT DATE: 202106
